FAERS Safety Report 21355441 (Version 2)
Quarter: 2022Q4

REPORT INFORMATION
  Report Type: Report from Study
  Country: US (occurrence: US)
  Receive Date: 20220920
  Receipt Date: 20221107
  Transmission Date: 20230113
  Serious: Yes (Hospitalization, Other)
  Sender: FDA-Public Use
  Company Number: US-TAKEDA-2022TUS003415

PATIENT
  Sex: Male
  Weight: 72 kg

DRUGS (3)
  1. PONATINIB [Suspect]
     Active Substance: PONATINIB
     Indication: Chronic myeloid leukaemia
     Dosage: 30 MILLIGRAM, QD
     Route: 065
  2. PONATINIB [Suspect]
     Active Substance: PONATINIB
     Dosage: 15 MILLIGRAM
     Route: 065
  3. PONATINIB [Suspect]
     Active Substance: PONATINIB
     Dosage: 15 MILLIGRAM, QD
     Route: 065
     Dates: start: 202111, end: 20220915

REACTIONS (7)
  - Oesophageal rupture [Unknown]
  - Haematemesis [Unknown]
  - Gastrointestinal haemorrhage [Recovered/Resolved]
  - Cardiac disorder [Unknown]
  - Chest pain [Unknown]
  - Weight decreased [Unknown]
  - Product dose omission issue [Unknown]
